FAERS Safety Report 24437220 (Version 1)
Quarter: 2024Q4

REPORT INFORMATION
  Report Type: Spontaneous
  Country: US (occurrence: None)
  Receive Date: 20241011
  Receipt Date: 20241011
  Transmission Date: 20250115
  Serious: Yes (Life-Threatening)
  Sender: Public
  Company Number: None

PATIENT
  Age: 62 Year
  Sex: Male
  Weight: 104 kg

DRUGS (1)
  1. HYDROCHLOROTHIAZIDE\LISINOPRIL [Suspect]
     Active Substance: HYDROCHLOROTHIAZIDE\LISINOPRIL
     Indication: Hypertension
     Route: 048
     Dates: start: 20230710, end: 20240620

REACTIONS (1)
  - Angioedema [None]

NARRATIVE: CASE EVENT DATE: 20240620
